FAERS Safety Report 7072621-1 (Version None)
Quarter: 2010Q4

REPORT INFORMATION
  Report Type: 
  Country: None (occurrence: None)
  Receive Date: 20101029
  Receipt Date: 20100601
  Transmission Date: 20110411
  Serious: No
  Sender: FDA-Public Use
  Company Number: A0845456A

PATIENT
  Age: 77 Year
  Sex: Female
  Weight: 84 kg

DRUGS (6)
  1. ADVAIR DISKUS 100/50 [Suspect]
     Indication: ASTHMA
     Dosage: 1PUFF ALTERNATE DAYS
     Route: 055
     Dates: start: 20081001, end: 20100211
  2. METOPROLOL [Concomitant]
  3. CLONIDINE [Concomitant]
  4. DYAZIDE [Concomitant]
  5. ALLOPURINOL [Concomitant]
  6. LOVASTATIN [Concomitant]

REACTIONS (2)
  - CANDIDIASIS [None]
  - CHAPPED LIPS [None]
